FAERS Safety Report 18784590 (Version 3)
Quarter: 2021Q2

REPORT INFORMATION
  Report Type: Spontaneous
  Country: TH (occurrence: TH)
  Receive Date: 20210125
  Receipt Date: 20210430
  Transmission Date: 20210717
  Serious: Yes (Hospitalization, Other)
  Sender: FDA-Public Use
  Company Number: TH-BRISTOL-MYERS SQUIBB COMPANY-BMS-2021-005041

PATIENT
  Age: 77 Year
  Sex: Female

DRUGS (1)
  1. OPDIVO [Suspect]
     Active Substance: NIVOLUMAB
     Indication: RENAL CELL CARCINOMA
     Dosage: 140 MILLIGRAM, Q2WK
     Route: 042
     Dates: start: 20201106

REACTIONS (3)
  - Gastrointestinal inflammation [Unknown]
  - Drug ineffective [Unknown]
  - Malignant neoplasm progression [Unknown]
